FAERS Safety Report 8513368-1 (Version None)
Quarter: 2012Q3

REPORT INFORMATION
  Report Type: 
  Country: None (occurrence: None)
  Receive Date: 20120716
  Receipt Date: 20120706
  Transmission Date: 20120928
  Serious: Yes (Other)
  Sender: FDA-Public Use
  Company Number: US-ASTRAZENECA-2012SE39119

PATIENT
  Age: 72 Year
  Sex: Female

DRUGS (5)
  1. D3 [Concomitant]
  2. ARIMIDEX [Suspect]
     Route: 048
  3. FOSAMAX [Concomitant]
  4. CALCIUM [Concomitant]
     Dosage: 1500
  5. VITAMIN B-12 [Concomitant]

REACTIONS (3)
  - NEOPLASM MALIGNANT [None]
  - LYMPHOEDEMA [None]
  - BREAST CANCER [None]
